FAERS Safety Report 5270470-8 (Version None)
Quarter: 2007Q1

REPORT INFORMATION
  Report Type: 
  Country: None (occurrence: None)
  Receive Date: 20070320
  Receipt Date: 20070308
  Transmission Date: 20070707
  Serious: Yes (Death)
  Sender: FDA-Public Use
  Company Number: US-PFIZER INC-2007020031

PATIENT
  Age: 40 Year
  Sex: Male

DRUGS (4)
  1. NEURONTIN [Suspect]
     Indication: PAIN
     Dosage: DAILY DOSE:3200MG-FREQ:DAILY
     Route: 048
     Dates: start: 20010601, end: 20021010
  2. HYDROCODONE [Suspect]
  3. AMITRIPTYLINE HCL [Suspect]
  4. COCAINE [Suspect]

REACTIONS (2)
  - COMPLETED SUICIDE [None]
  - MULTIPLE DRUG OVERDOSE [None]
